FAERS Safety Report 7720110-0 (Version None)
Quarter: 2011Q3

REPORT INFORMATION
  Report Type: 
  Country: None (occurrence: None)
  Receive Date: 20110824
  Receipt Date: 20110809
  Transmission Date: 20111222
  Serious: Yes (Death, Life-Threatening, Hospitalization, Other)
  Sender: FDA-Public Use
  Company Number: 2011MA011571

PATIENT
  Age: 13 Month
  Sex: Female
  Weight: 10 kg

DRUGS (1)
  1. DICLOFENAC SODIUM [Suspect]
     Indication: PAIN
     Dosage: 40 MG; IM
     Route: 030

REACTIONS (11)
  - METABOLIC ACIDOSIS [None]
  - HEART RATE INCREASED [None]
  - PNEUMOPERITONEUM [None]
  - RHABDOMYOLYSIS [None]
  - MUSCLE RIGIDITY [None]
  - BLOOD PRESSURE DECREASED [None]
  - PNEUMOTHORAX [None]
  - MUSCULOSKELETAL CHEST PAIN [None]
  - ACCIDENTAL OVERDOSE [None]
  - CARDIOPULMONARY FAILURE [None]
  - INTENTIONAL OVERDOSE [None]
